FAERS Safety Report 10542219 (Version 2)
Quarter: 2014Q4

REPORT INFORMATION
  Report Type: Report from Study
  Country: US (occurrence: US)
  Receive Date: 20141024
  Receipt Date: 20141024
  Transmission Date: 20150529
  Serious: No
  Sender: FDA-Public Use
  Company Number: US-009507513-1405USA012652

PATIENT
  Age: 72 Year
  Sex: Male

DRUGS (20)
  1. PEMBROLIZUMAB. [Suspect]
     Active Substance: PEMBROLIZUMAB
     Dosage: 2 MG/KG, Q3W, TOTAL DAILY DOSE 156 MG
     Route: 042
     Dates: start: 20140624, end: 20140624
  2. HYDROCHLOROTHIAZIDE (+) TRIAMTERENE [Concomitant]
     Dosage: STRENGTH 37.5-25MG, DOSE UNKNOWN, QAM
     Route: 048
  3. VITAMINS (UNSPECIFIED) [Concomitant]
     Active Substance: VITAMINS
     Dosage: 1 TABLET, QD
     Route: 048
  4. PEMBROLIZUMAB. [Suspect]
     Active Substance: PEMBROLIZUMAB
     Indication: METASTATIC MALIGNANT MELANOMA
     Dosage: 2 MG/KG, Q3W, TOTAL DAILY DOSE 158 MG
     Route: 042
     Dates: start: 20140421, end: 20140421
  5. PEMBROLIZUMAB. [Suspect]
     Active Substance: PEMBROLIZUMAB
     Dosage: 2 MG/KG, Q3W, TOTAL DAILY DOSE 158 MG
     Route: 042
     Dates: start: 20140604, end: 20140604
  6. PEMBROLIZUMAB. [Suspect]
     Active Substance: PEMBROLIZUMAB
     Dosage: 2 MG/KG, Q3W, TOTAL DAILY DOSE 159 MG
     Route: 042
     Dates: start: 20140804, end: 20140804
  7. FINASTERIDE. [Concomitant]
     Active Substance: FINASTERIDE
     Dosage: 5 MG, QAM
     Route: 048
  8. LABETALOL HYDROCHLORIDE. [Concomitant]
     Active Substance: LABETALOL HYDROCHLORIDE
     Dosage: 300MG, ONE-HALF TABLET BID
     Route: 048
  9. UBIDECARENONE [Concomitant]
     Active Substance: UBIDECARENONE
     Dosage: 200 MG, QD
     Route: 048
  10. ENALAPRIL MALEATE. [Concomitant]
     Active Substance: ENALAPRIL MALEATE
     Dosage: 5 MG, QAM
     Route: 048
  11. VITAMIN WORLD TRIPLE OMEGA 3-6-9 [Concomitant]
     Dosage: 1 CAPSULE, BID
     Route: 048
  12. ASPIRIN. [Concomitant]
     Active Substance: ASPIRIN
     Dosage: 81 MG, BID
     Route: 048
  13. DOXAZOSIN MESYLATE. [Concomitant]
     Active Substance: DOXAZOSIN MESYLATE
     Dosage: 4MG, ONE-HALF TABLET TWO TIMES A DAY
     Route: 048
  14. ASCORBIC ACID. [Concomitant]
     Active Substance: ASCORBIC ACID
     Dosage: 500 MG, QD
     Route: 048
  15. PEMBROLIZUMAB. [Suspect]
     Active Substance: PEMBROLIZUMAB
     Dosage: 2 MG/KG, Q3W, TOTAL DAILY DOSE 156 MG
     Route: 042
     Dates: start: 20140512, end: 20140512
  16. PEMBROLIZUMAB. [Suspect]
     Active Substance: PEMBROLIZUMAB
     Dosage: 2 MG/KG, Q3W, TOTAL DAILY DOSE 160 MG
     Route: 042
     Dates: start: 20140715, end: 20140715
  17. BETA CAROTENE [Concomitant]
     Dosage: 25000 UNITS, QD
     Route: 048
  18. CALCIUM MAGNESIUM ZINC [Concomitant]
     Active Substance: CALCIUM\MAGNESIUM\ZINC
     Dosage: 1 TABLET, QD
     Route: 048
  19. DILTIAZEM HYDROCHLORIDE. [Concomitant]
     Active Substance: DILTIAZEM HYDROCHLORIDE
     Dosage: 240 MG, QAM
     Route: 048
  20. METFORMIN [Concomitant]
     Active Substance: METFORMIN HYDROCHLORIDE
     Dosage: TWO TABLETS (500 MG), BID
     Route: 048

REACTIONS (1)
  - Fatigue [Not Recovered/Not Resolved]

NARRATIVE: CASE EVENT DATE: 20140512
